FAERS Safety Report 4759816-4 (Version None)
Quarter: 2005Q3

REPORT INFORMATION
  Report Type: 
  Country: None (occurrence: None)
  Receive Date: 20050831
  Receipt Date: 20050831
  Transmission Date: 20060218
  Serious: Yes (Hospitalization)
  Sender: FDA-Public Use
  Company Number: None

PATIENT
  Age: 77 Year
  Sex: Male

DRUGS (9)
  1. ATORVASTATIN [Suspect]
     Indication: CORONARY ARTERY DISEASE
     Dosage: PO
     Route: 048
  2. TYLENOL [Concomitant]
  3. ASPIRIN [Concomitant]
  4. LOTENSIN [Concomitant]
  5. DOCUSATE SODIUM-COLACE [Concomitant]
  6. FOLIC ACID-FOLVITE [Concomitant]
  7. METOPROL-TOPROL XL [Concomitant]
  8. NITROGLYCERIN-NITROSTAT [Concomitant]
  9. SENNA [Concomitant]

REACTIONS (2)
  - CHEST PAIN [None]
  - RHABDOMYOLYSIS [None]
